FAERS Safety Report 9397546 (Version 3)
Quarter: 2013Q3

REPORT INFORMATION
  Report Type: Spontaneous
  Country: CA (occurrence: CA)
  Receive Date: 20130712
  Receipt Date: 20130812
  Transmission Date: 20140515
  Serious: Yes (Death, Other)
  Sender: FDA-Public Use
  Company Number: CA-PFIZER INC-2013202440

PATIENT
  Age: 62 Year
  Sex: Female
  Weight: 78.2 kg

DRUGS (12)
  1. XALKORI [Suspect]
     Indication: NON-SMALL CELL LUNG CANCER
     Dosage: 250 MG, 2X/DAY
     Route: 048
     Dates: start: 20130620, end: 20130707
  2. FRAGMIN [Concomitant]
     Indication: PULMONARY EMBOLISM
     Dosage: 15000 (NO UNITS PROVIDED) ONCE DAILY
     Route: 058
     Dates: start: 20130614
  3. DECADRON [Concomitant]
     Indication: METASTASES TO CENTRAL NERVOUS SYSTEM
     Dosage: UNK
  4. DECADRON [Concomitant]
     Dosage: 4 MG, 3X/DAY
     Route: 048
     Dates: start: 20130627, end: 20130703
  5. DECADRON [Concomitant]
     Dosage: 4 MG, 2X/DAY
     Dates: start: 20130704, end: 20130707
  6. NYSTATIN [Concomitant]
     Dosage: 1 ML, 4X/DAY
     Dates: start: 20130627
  7. DILAUDID [Concomitant]
     Indication: PAIN
     Dosage: 1 MG, EVERY 4 HOURS AS NEEDED
     Route: 048
     Dates: start: 20130627
  8. ATIVAN [Concomitant]
     Indication: INSOMNIA
     Dosage: 1 MG, 1X/DAY AT BEDTIME
     Route: 048
     Dates: start: 20130627
  9. COLACE [Concomitant]
     Dosage: 200 MG, 1X/DAY AT BEDTIME
     Route: 048
     Dates: start: 20130627
  10. SENOKOT [Concomitant]
     Dosage: 17.2 MG, 1X/DAY AT BEDTIME
     Route: 048
     Dates: start: 20130627
  11. PANTOLOC [Concomitant]
     Dosage: 40 MG, 1X/DAY
     Route: 048
     Dates: start: 20130627
  12. CELEBREX [Concomitant]
     Dosage: 200 MG, 1X/DAY
     Route: 048
     Dates: start: 20130701, end: 20130707

REACTIONS (3)
  - Disease progression [Fatal]
  - Non-small cell lung cancer [Fatal]
  - Anaemia [Unknown]
